FAERS Safety Report 21064300 (Version 1)
Quarter: 2022Q3

REPORT INFORMATION
  Report Type: Spontaneous
  Country: US (occurrence: None)
  Receive Date: 20220710
  Receipt Date: 20220710
  Transmission Date: 20221026
  Serious: Yes (Other)
  Sender: FDA-Public Use
  Company Number: None

PATIENT
  Age: 53 Year
  Sex: Female
  Weight: 81 kg

DRUGS (1)
  1. BUPRENORPHINE\NALOXONE [Suspect]
     Active Substance: BUPRENORPHINE\NALOXONE
     Indication: Drug use disorder
     Dosage: OTHER QUANTITY : 60 2;?
     Route: 060

REACTIONS (5)
  - Dental caries [None]
  - Toothache [None]
  - Hypophagia [None]
  - Psychiatric symptom [None]
  - Emotional distress [None]

NARRATIVE: CASE EVENT DATE: 20210101
